FAERS Safety Report 16225264 (Version 2)
Quarter: 2019Q3

REPORT INFORMATION
  Report Type: Spontaneous
  Country: US (occurrence: US)
  Receive Date: 20190422
  Receipt Date: 20190719
  Transmission Date: 20191004
  Serious: Yes (Other)
  Sender: FDA-Public Use
  Company Number: US-ASTRAZENECA-2019SE11165

PATIENT
  Age: 15878 Day

DRUGS (34)
  1. NEXIUM [Suspect]
     Active Substance: ESOMEPRAZOLE MAGNESIUM
     Indication: GASTROOESOPHAGEAL REFLUX DISEASE
     Route: 048
     Dates: start: 20160629
  2. OLANZAPINE. [Concomitant]
     Active Substance: OLANZAPINE
  3. PANTOPRAZOLE [Suspect]
     Active Substance: PANTOPRAZOLE
     Indication: GASTROOESOPHAGEAL REFLUX DISEASE
     Dosage: GENERIC, 40 MG, UNK
     Route: 065
     Dates: start: 2012
  4. LAMOTRIGINE. [Concomitant]
     Active Substance: LAMOTRIGINE
  5. LORATADINE. [Concomitant]
     Active Substance: LORATADINE
  6. AMOX [Concomitant]
     Active Substance: UNSPECIFIED INGREDIENT
  7. NAPROXEN. [Concomitant]
     Active Substance: NAPROXEN
  8. GEODON [Concomitant]
     Active Substance: ZIPRASIDONE HYDROCHLORIDE\ZIPRASIDONE MESYLATE
  9. SINGULAIR [Concomitant]
     Active Substance: MONTELUKAST SODIUM
  10. IBUPROFEN. [Concomitant]
     Active Substance: IBUPROFEN
  11. CEPHALEXIN. [Concomitant]
     Active Substance: CEPHALEXIN
  12. PREDNISONE. [Concomitant]
     Active Substance: PREDNISONE
  13. NEXIUM [Suspect]
     Active Substance: ESOMEPRAZOLE MAGNESIUM
     Indication: GASTROOESOPHAGEAL REFLUX DISEASE
     Dosage: 40 MG, UNK
     Route: 048
     Dates: start: 2010
  14. OMEPRAZOLE. [Suspect]
     Active Substance: OMEPRAZOLE
     Indication: GASTROOESOPHAGEAL REFLUX DISEASE
     Dosage: GENERIC, 40 MG, UNK
     Route: 065
     Dates: start: 2015
  15. OMEPRAZOLE. [Suspect]
     Active Substance: OMEPRAZOLE
     Indication: GASTROOESOPHAGEAL REFLUX DISEASE
     Dosage: GENERIC, 40 MG, UNK
     Route: 065
     Dates: start: 2012
  16. AMOXICILLIN. [Concomitant]
     Active Substance: AMOXICILLIN
  17. CLONAZEPAM. [Concomitant]
     Active Substance: CLONAZEPAM
  18. FUROSEMIDE. [Concomitant]
     Active Substance: FUROSEMIDE
  19. BENETHAMINE PENICILLIN [Concomitant]
     Active Substance: BENETHAMINE PENICILLIN
  20. PANTOPRAZOLE [Suspect]
     Active Substance: PANTOPRAZOLE
     Indication: GASTROOESOPHAGEAL REFLUX DISEASE
     Dosage: GENERIC, 40 MG, UNK
     Route: 065
     Dates: start: 2015
  21. LISINOPRIL. [Concomitant]
     Active Substance: LISINOPRIL
  22. LAMOTRIGINE. [Concomitant]
     Active Substance: LAMOTRIGINE
  23. LORAZEPAM. [Concomitant]
     Active Substance: LORAZEPAM
  24. NEXIUM [Suspect]
     Active Substance: ESOMEPRAZOLE MAGNESIUM
     Indication: GASTROOESOPHAGEAL REFLUX DISEASE
     Dosage: 40 MG, UNK
     Route: 048
     Dates: start: 2015
  25. AZITHROMYCIN ANHYDROUS. [Concomitant]
     Active Substance: AZITHROMYCIN ANHYDROUS
  26. AVALIDE [Concomitant]
     Active Substance: HYDROCHLOROTHIAZIDE\IRBESARTAN
  27. LORATADINE. [Concomitant]
     Active Substance: LORATADINE
  28. HYDROCODONE BITARTRATE AND ACETAMINOPHEN [Concomitant]
     Active Substance: ACETAMINOPHEN\HYDROCODONE BITARTRATE
  29. NAPROXEN. [Concomitant]
     Active Substance: NAPROXEN
  30. ZIPRASIDONE. [Concomitant]
     Active Substance: ZIPRASIDONE
  31. NEXIUM [Suspect]
     Active Substance: ESOMEPRAZOLE MAGNESIUM
     Indication: GASTROOESOPHAGEAL REFLUX DISEASE
     Dosage: GENERIC, 40 MG, UNK
     Route: 048
     Dates: start: 2015
  32. ALPRAZOLAM. [Concomitant]
     Active Substance: ALPRAZOLAM
  33. ALPRAZOLAM. [Concomitant]
     Active Substance: ALPRAZOLAM
  34. SEROQUEL [Concomitant]
     Active Substance: QUETIAPINE FUMARATE

REACTIONS (3)
  - Rebound acid hypersecretion [Unknown]
  - Renal failure [Unknown]
  - Chronic kidney disease [Unknown]

NARRATIVE: CASE EVENT DATE: 20160907
